FAERS Safety Report 10364612 (Version 1)
Quarter: 2014Q3

REPORT INFORMATION
  Report Type: Spontaneous
  Country: US (occurrence: None)
  Receive Date: 20140805
  Receipt Date: 20140805
  Transmission Date: 20150326
  Serious: Yes (Hospitalization)
  Sender: FDA-Public Use
  Company Number: None

PATIENT
  Age: 93 Year
  Sex: Male
  Weight: 64 kg

DRUGS (1)
  1. SIMVASTATIN. [Suspect]
     Active Substance: SIMVASTATIN
     Indication: HYPERLIPIDAEMIA
     Route: 048
     Dates: start: 20060117, end: 20131015

REACTIONS (4)
  - Rhabdomyolysis [None]
  - Pain [None]
  - Confusional state [None]
  - Pulmonary embolism [None]

NARRATIVE: CASE EVENT DATE: 20130926
